FAERS Safety Report 16128163 (Version 1)
Quarter: 2019Q1

REPORT INFORMATION
  Report Type: Spontaneous
  Country: US (occurrence: US)
  Receive Date: 20190328
  Receipt Date: 20190328
  Transmission Date: 20190418
  Serious: No
  Sender: FDA-Public Use
  Company Number: US-SA-2019SA081017

PATIENT
  Age: 30 Year
  Sex: Male

DRUGS (7)
  1. ALLEGRA ALLERGY [Concomitant]
     Active Substance: FEXOFENADINE HYDROCHLORIDE
  2. FLUCONAZOLE. [Concomitant]
     Active Substance: FLUCONAZOLE
  3. BETAMETHASONE. [Concomitant]
     Active Substance: BETAMETHASONE
  4. MUPIROCIN. [Concomitant]
     Active Substance: MUPIROCIN
  5. CEPHALEXINE [Concomitant]
     Active Substance: CEPHALEXIN
  6. DUPIXENT [Suspect]
     Active Substance: DUPILUMAB
     Indication: DERMATITIS ATOPIC
     Dosage: 300 MG, QOW
     Route: 058
  7. PREDNISONE. [Concomitant]
     Active Substance: PREDNISONE

REACTIONS (1)
  - Eye pruritus [Unknown]
